FAERS Safety Report 4959410-6 (Version None)
Quarter: 2006Q1

REPORT INFORMATION
  Report Type: 
  Country: None (occurrence: None)
  Receive Date: 20060331
  Receipt Date: 20060322
  Transmission Date: 20060701
  Serious: Yes (Hospitalization)
  Sender: FDA-Public Use
  Company Number: US-MERCK-0603USA03695

PATIENT
  Age: 64 Year
  Sex: Female
  Weight: 86 kg

DRUGS (10)
  1. ALBUTEROL [Concomitant]
     Route: 065
  2. VIOXX [Suspect]
     Indication: PAIN
     Route: 048
     Dates: start: 20040301, end: 20040501
  3. VIOXX [Suspect]
     Indication: MUSCULOSKELETAL DISCOMFORT
     Route: 048
     Dates: start: 20040301, end: 20040501
  4. TOPROL-XL [Concomitant]
     Route: 065
  5. ZANTAC [Concomitant]
     Route: 065
  6. DIOVAN [Concomitant]
     Route: 065
  7. PROZAC [Concomitant]
     Indication: DEPRESSION
     Route: 065
  8. PROZAC [Concomitant]
     Indication: ANXIETY
     Route: 065
  9. XANAX [Concomitant]
     Indication: DEPRESSION
     Route: 065
  10. XANAX [Concomitant]
     Indication: ANXIETY
     Route: 065

REACTIONS (3)
  - ANXIETY [None]
  - CEREBROVASCULAR ACCIDENT [None]
  - DEPRESSION [None]
